FAERS Safety Report 20062115 (Version 1)
Quarter: 2021Q4

REPORT INFORMATION
  Report Type: Spontaneous
  Country: US (occurrence: US)
  Receive Date: 20211112
  Receipt Date: 20211112
  Transmission Date: 20220303
  Serious: No
  Sender: FDA-Public Use
  Company Number: US-drreddys-SPO/USA/21/0143641

PATIENT
  Age: 13 Year
  Sex: Male

DRUGS (1)
  1. ACCUTANE [Suspect]
     Active Substance: ISOTRETINOIN
     Indication: Product used for unknown indication
     Dosage: RMA ISSUE DATE:21 JUNE 2021 3:32:13 PM, 21 JULY 2021 1:15:02 PM, 20 AUGUST 2021 5:04:47 PM, 20 SEPTE

REACTIONS (1)
  - Arthralgia [Unknown]
